FAERS Safety Report 7922584-9 (Version None)
Quarter: 2011Q4

REPORT INFORMATION
  Report Type: 
  Country: None (occurrence: None)
  Receive Date: 20111117
  Receipt Date: 20101112
  Transmission Date: 20120403
  Serious: No
  Sender: FDA-Public Use
  Company Number: US-ALLERGAN-1014695US

PATIENT
  Age: 85 Year
  Sex: Female

DRUGS (2)
  1. XALATAN [Concomitant]
     Indication: GLAUCOMA
     Dosage: 1 GTT, QD
     Route: 047
  2. COMBIGAN [Suspect]
     Indication: GLAUCOMA
     Dosage: 1 GTT, BID
     Route: 047
     Dates: start: 20101107, end: 20101108

REACTIONS (4)
  - EYE PRURITUS [None]
  - ERYTHEMA OF EYELID [None]
  - EYELIDS PRURITUS [None]
  - VISION BLURRED [None]
